FAERS Safety Report 8057416-4 (Version None)
Quarter: 2012Q1

REPORT INFORMATION
  Report Type: 
  Country: None (occurrence: None)
  Receive Date: 20120119
  Receipt Date: 20120110
  Transmission Date: 20120608
  Serious: Yes (Hospitalization, Other)
  Sender: FDA-Public Use
  Company Number: US-ASTRAZENECA-2010SE10613

PATIENT
  Age: 57 Year
  Sex: Female
  Weight: 71.7 kg

DRUGS (17)
  1. NEXIUM [Suspect]
     Route: 048
     Dates: start: 20090301
  2. NEXIUM [Suspect]
     Route: 048
  3. OMEPRAZOLE [Suspect]
     Indication: OESOPHAGITIS
     Route: 048
  4. KLONOPIN [Concomitant]
  5. ASPIRIN [Concomitant]
  6. NEXIUM [Suspect]
     Indication: EROSIVE OESOPHAGITIS
     Route: 048
     Dates: end: 20040101
  7. NEURONTIN [Concomitant]
     Indication: INTRACRANIAL ANEURYSM
  8. NEXIUM [Suspect]
     Dosage: TWO TIMES DAILY
     Route: 048
  9. NEXIUM [Suspect]
     Indication: GASTROOESOPHAGEAL REFLUX DISEASE
     Route: 048
     Dates: end: 20040101
  10. DEXILANT [Suspect]
     Route: 065
  11. NEXIUM [Suspect]
     Route: 048
     Dates: start: 20031105
  12. NEXIUM [Suspect]
     Dosage: TWO TIMES DAILY
     Route: 048
  13. TRAMADOL HCL [Concomitant]
     Indication: PAIN
  14. NEXIUM [Suspect]
     Route: 048
     Dates: start: 20031105
  15. NEXIUM [Suspect]
     Route: 048
     Dates: start: 20090301
  16. NEXIUM [Suspect]
     Route: 048
  17. ZOCOR [Concomitant]
     Indication: BLOOD CHOLESTEROL

REACTIONS (20)
  - ANGIOCENTRIC LYMPHOMA [None]
  - INTRACRANIAL ANEURYSM [None]
  - HEART VALVE INCOMPETENCE [None]
  - THROAT IRRITATION [None]
  - GOITRE [None]
  - DYSPHAGIA [None]
  - LUNG NEOPLASM [None]
  - LARYNGITIS [None]
  - GASTROOESOPHAGEAL REFLUX DISEASE [None]
  - DRUG INEFFECTIVE [None]
  - INAPPROPRIATE SCHEDULE OF DRUG ADMINISTRATION [None]
  - IRRITABLE BOWEL SYNDROME [None]
  - SUPRAVENTRICULAR TACHYCARDIA [None]
  - CHEST PAIN [None]
  - PAIN [None]
  - HIATUS HERNIA [None]
  - THYROID NEOPLASM [None]
  - GASTRITIS [None]
  - EROSIVE OESOPHAGITIS [None]
  - OESOPHAGITIS [None]
